FAERS Safety Report 5292599-0 (Version None)
Quarter: 2007Q2

REPORT INFORMATION
  Report Type: 
  Country: None (occurrence: None)
  Receive Date: 20070404
  Receipt Date: 20070320
  Transmission Date: 20071010
  Serious: Yes (Life-Threatening, Hospitalization)
  Sender: FDA-Public Use
  Company Number: SPV1-2007-01406

PATIENT
  Age: 14 Year
  Sex: Male

DRUGS (1)
  1. CARBAMAZEPINE [Suspect]
     Dosage: 300 MG X 20 TABLETS, ORAL
     Route: 048

REACTIONS (7)
  - BODY TEMPERATURE DECREASED [None]
  - HAEMODIALYSIS [None]
  - LOSS OF CONSCIOUSNESS [None]
  - OVERDOSE [None]
  - PUPILLARY REFLEX IMPAIRED [None]
  - RESPIRATORY RATE INCREASED [None]
  - UNRESPONSIVE TO STIMULI [None]
